FAERS Safety Report 10086628 (Version 1)
Quarter: 2014Q2

REPORT INFORMATION
  Report Type: Spontaneous
  Country: DE (occurrence: DE)
  Receive Date: 20140418
  Receipt Date: 20140418
  Transmission Date: 20141212
  Serious: Yes (Hospitalization)
  Sender: FDA-Public Use
  Company Number: DE-ABBVIE-14P-062-1225780-00

PATIENT
  Age: 23 Year
  Sex: Female

DRUGS (2)
  1. HUMIRA [Suspect]
     Indication: CROHN^S DISEASE
     Route: 058
     Dates: start: 20131202, end: 20140113
  2. HUMIRA [Suspect]
     Route: 058
     Dates: start: 20140407

REACTIONS (2)
  - Colonic fistula [Recovering/Resolving]
  - Ileectomy [Recovering/Resolving]
